FAERS Safety Report 9912561 (Version 1)
Quarter: 2014Q1

REPORT INFORMATION
  Report Type: Spontaneous
  Country: US (occurrence: None)
  Receive Date: 20140218
  Receipt Date: 20140218
  Transmission Date: 20141002
  Serious: Yes (Death)
  Sender: FDA-Public Use
  Company Number: None

PATIENT
  Age: 77 Year
  Sex: Female

DRUGS (1)
  1. ENOXAPARIN [Suspect]
     Route: 058

REACTIONS (3)
  - Haematuria [None]
  - International normalised ratio increased [None]
  - Haemoptysis [None]
